FAERS Safety Report 18497048 (Version 1)
Quarter: 2020Q4

REPORT INFORMATION
  Report Type: Spontaneous
  Country: IN (occurrence: IN)
  Receive Date: 20201112
  Receipt Date: 20201112
  Transmission Date: 20210114
  Serious: Yes (Other)
  Sender: FDA-Public Use
  Company Number: IN-SUN PHARMACEUTICAL INDUSTRIES LTD-2020R1-267291

PATIENT
  Age: 48 Year
  Sex: Male

DRUGS (1)
  1. METHOTREXATE. [Suspect]
     Active Substance: METHOTREXATE
     Indication: PSORIASIS
     Dosage: 15 MILLIGRAM,UNK
     Route: 065

REACTIONS (5)
  - Skin fissures [Recovered/Resolved]
  - Pancytopenia [Recovered/Resolved]
  - Genital erosion [Recovered/Resolved]
  - Nephropathy [Recovered/Resolved]
  - Gingival erosion [Recovered/Resolved]
